FAERS Safety Report 12539123 (Version 1)
Quarter: 2016Q3

REPORT INFORMATION
  Report Type: Spontaneous
  Country: VE (occurrence: VE)
  Receive Date: 20160708
  Receipt Date: 20160708
  Transmission Date: 20161109
  Serious: Yes (Other)
  Sender: FDA-Public Use
  Company Number: VE-UCBSA-2016021969

PATIENT
  Age: 9 Year
  Sex: Male
  Weight: 16 kg

DRUGS (3)
  1. TOPIRAMATO [Suspect]
     Active Substance: TOPIRAMATE
     Indication: PRODUCT USED FOR UNKNOWN INDICATION
     Dosage: UNK
  2. KEPPRA [Suspect]
     Active Substance: LEVETIRACETAM
     Indication: GENERALISED TONIC-CLONIC SEIZURE
  3. KEPPRA [Suspect]
     Active Substance: LEVETIRACETAM
     Indication: CEREBRAL PALSY
     Dosage: 500 MG IN THE MORNING,750 MG AT NIGHT, (STRENGTH :500MG)
     Route: 048
     Dates: start: 2003

REACTIONS (4)
  - Drug dose omission [Unknown]
  - Seizure [Unknown]
  - Drug ineffective [Unknown]
  - Sleep disorder [Unknown]
